FAERS Safety Report 9648710 (Version 2)
Quarter: 2013Q4

REPORT INFORMATION
  Report Type: Spontaneous
  Country: US (occurrence: US)
  Receive Date: 20131028
  Receipt Date: 20131104
  Transmission Date: 20140711
  Serious: Yes (Death, Hospitalization, Other)
  Sender: FDA-Public Use
  Company Number: US-GILEAD-2013-0086220

PATIENT
  Sex: Male

DRUGS (19)
  1. LETAIRIS [Suspect]
     Indication: PULMONARY ARTERIAL HYPERTENSION
     Dosage: 10 MG, QOD
     Route: 048
     Dates: start: 20100603, end: 20131013
  2. COLACE [Concomitant]
  3. TYLENOL                            /00020001/ [Concomitant]
  4. DIFLUCAN [Concomitant]
  5. NYSTATIN [Concomitant]
  6. VESICARE [Concomitant]
  7. GENERLAC [Concomitant]
  8. DUONEB [Concomitant]
  9. DEXAMETHASONE [Concomitant]
  10. CARBIDOPA/LEVODOPA [Concomitant]
  11. PULMICORT [Concomitant]
  12. ADCIRCA [Concomitant]
  13. BYSTOLIC [Concomitant]
  14. ALDACTONE                          /00006201/ [Concomitant]
  15. COUMADIN                           /00014802/ [Concomitant]
  16. POTASSIUM [Concomitant]
  17. LASIX                              /00032601/ [Concomitant]
  18. DIGOXIN [Concomitant]
  19. SINEMET [Concomitant]

REACTIONS (2)
  - Chronic obstructive pulmonary disease [Fatal]
  - Parkinson^s disease [Fatal]
